FAERS Safety Report 5500685-2 (Version None)
Quarter: 2007Q4

REPORT INFORMATION
  Report Type: 
  Country: None (occurrence: None)
  Receive Date: 20071025
  Receipt Date: 20071018
  Transmission Date: 20080405
  Serious: Yes (Hospitalization)
  Sender: FDA-Public Use
  Company Number: 2007-04702

PATIENT
  Age: 31 Year
  Sex: Female

DRUGS (2)
  1. FLUOROURACIL [Suspect]
     Indication: RADIOTHERAPY
     Dosage: 225 MG/M2/DAY 5 DAYS A WEEK X 6 W
  2. RADIATION THERAPY [Concomitant]

REACTIONS (4)
  - CARDIAC FAILURE CONGESTIVE [None]
  - CARDIOTOXICITY [None]
  - DYSPNOEA [None]
  - EJECTION FRACTION DECREASED [None]
